FAERS Safety Report 9396539 (Version 1)
Quarter: 2013Q3

REPORT INFORMATION
  Report Type: Spontaneous
  Country: US (occurrence: US)
  Receive Date: 20130711
  Receipt Date: 20130711
  Transmission Date: 20140515
  Serious: No
  Sender: FDA-Public Use
  Company Number: US-BIOGENIDEC-2013BI062201

PATIENT
  Age: 65 Year
  Sex: Male

DRUGS (2)
  1. TYSABRI [Suspect]
     Indication: MULTIPLE SCLEROSIS
     Route: 042
     Dates: start: 20120912
  2. AVONEX [Concomitant]
     Indication: MULTIPLE SCLEROSIS
     Route: 030
     Dates: start: 20040227

REACTIONS (7)
  - Yellow skin [Unknown]
  - General symptom [Unknown]
  - Pain in extremity [Unknown]
  - Abasia [Unknown]
  - Urinary tract infection [Unknown]
  - Asthenia [Unknown]
  - Fatigue [Unknown]
